FAERS Safety Report 20849196 (Version 4)
Quarter: 2022Q2

REPORT INFORMATION
  Report Type: Report from Study
  Country: US (occurrence: US)
  Receive Date: 20220519
  Receipt Date: 20220621
  Transmission Date: 20220720
  Serious: Yes (Death)
  Sender: FDA-Public Use
  Company Number: NVSC2022US115651

PATIENT
  Sex: Female

DRUGS (1)
  1. PROMACTA [Suspect]
     Active Substance: ELTROMBOPAG OLAMINE
     Indication: Immune thrombocytopenia
     Dosage: 25 MG, QD
     Route: 048
     Dates: start: 202204

REACTIONS (6)
  - Death [Fatal]
  - Headache [Recovering/Resolving]
  - Hypersensitivity [Unknown]
  - Rhinitis [Recovering/Resolving]
  - Erythema [Recovering/Resolving]
  - Platelet count abnormal [Unknown]
